FAERS Safety Report 21783814 (Version 3)
Quarter: 2023Q1

REPORT INFORMATION
  Report Type: Spontaneous
  Country: US (occurrence: US)
  Receive Date: 20221227
  Receipt Date: 20230322
  Transmission Date: 20230418
  Serious: Yes (Other)
  Sender: FDA-Public Use
  Company Number: US-SA-SAC20221227000353

PATIENT
  Age: 6 Year
  Sex: Male
  Weight: 22 kg

DRUGS (14)
  1. ALPROLIX [Suspect]
     Active Substance: EFTRENONACOG ALFA
     Indication: Factor IX deficiency
     Dosage: 1500 IU, QW
     Route: 042
     Dates: start: 202109
  2. ALPROLIX [Suspect]
     Active Substance: EFTRENONACOG ALFA
     Indication: Factor IX deficiency
     Dosage: 1500 IU, QW
     Route: 042
     Dates: start: 202109
  3. ALPROLIX [Suspect]
     Active Substance: EFTRENONACOG ALFA
     Indication: Prophylaxis
     Dosage: 1082 IU, QW
     Route: 042
     Dates: start: 20220914
  4. ALPROLIX [Suspect]
     Active Substance: EFTRENONACOG ALFA
     Indication: Prophylaxis
     Dosage: 1082 IU, QW
     Route: 042
     Dates: start: 20220914
  5. ALPROLIX [Suspect]
     Active Substance: EFTRENONACOG ALFA
     Dosage: 418 IU, QW
     Route: 042
     Dates: start: 20220914
  6. ALPROLIX [Suspect]
     Active Substance: EFTRENONACOG ALFA
     Dosage: 418 IU, QW
     Route: 042
     Dates: start: 20220914
  7. ALPROLIX [Suspect]
     Active Substance: EFTRENONACOG ALFA
     Dosage: 1500 IU, QW
     Route: 042
     Dates: start: 20220914, end: 20221201
  8. ALPROLIX [Suspect]
     Active Substance: EFTRENONACOG ALFA
     Dosage: 1500 IU, QW
     Route: 042
     Dates: start: 20220914, end: 20221201
  9. ALPROLIX [Suspect]
     Active Substance: EFTRENONACOG ALFA
     Dosage: 1500 IU, QW
     Route: 042
     Dates: start: 20221201, end: 20221221
  10. ALPROLIX [Suspect]
     Active Substance: EFTRENONACOG ALFA
     Dosage: 1500 IU, QW
     Route: 042
     Dates: start: 20221201, end: 20221221
  11. AMICAR [Concomitant]
     Active Substance: AMINOCAPROIC ACID
     Indication: Mouth haemorrhage
     Dosage: 4 ML, Q6H PRN UPTO 5 DAYS, 236.5 ML DISPENSE 2 REFILL
     Route: 048
  12. AMICAR [Concomitant]
     Active Substance: AMINOCAPROIC ACID
     Indication: Epistaxis
  13. VITAMINS [Concomitant]
     Active Substance: VITAMINS
     Dosage: CHEW BBY MOUTH
     Route: 048
  14. LYSTEDA [Concomitant]
     Active Substance: TRANEXAMIC ACID
     Indication: Haemorrhage
     Dosage: 0.5 DF, BID UPTO 3 DAYS (15 TABLET DISPENSE 1 REFILL)
     Route: 048
     Dates: start: 20221129, end: 20230112

REACTIONS (4)
  - Spontaneous haemorrhage [Unknown]
  - Haemarthrosis [Unknown]
  - Arthralgia [Unknown]
  - Gait disturbance [Unknown]

NARRATIVE: CASE EVENT DATE: 20221127
